FAERS Safety Report 8499370-7 (Version None)
Quarter: 2012Q3

REPORT INFORMATION
  Report Type: 
  Country: None (occurrence: None)
  Receive Date: 20120710
  Receipt Date: 20120628
  Transmission Date: 20120928
  Serious: Yes (Death, Hospitalization)
  Sender: FDA-Public Use
  Company Number: GB-MILLENNIUM PHARMACEUTICALS, INC.-2012-04670

PATIENT

DRUGS (13)
  1. BENDROFLUMETHIAZIDE [Concomitant]
  2. CODEINE SULFATE [Concomitant]
  3. DEXAMETHASONE [Concomitant]
     Indication: MULTIPLE MYELOMA
  4. GABAPENTIN [Concomitant]
  5. IBUPROFEN [Concomitant]
  6. VELCADE [Suspect]
     Indication: MULTIPLE MYELOMA
     Dosage: 1.3 MG/M2, UNK
     Route: 058
     Dates: start: 20111212, end: 20120302
  7. BISACODYL [Concomitant]
  8. ACETAMINOPHEN [Concomitant]
  9. PAMIDRONATE DISODIUM [Concomitant]
  10. AMITRIPTYLINE HCL [Concomitant]
  11. DIAZEPAM [Concomitant]
  12. ENOXAPARIN [Concomitant]
  13. TRAMADOL HCL [Concomitant]

REACTIONS (8)
  - TROPONIN INCREASED [None]
  - CHEST PAIN [None]
  - PYREXIA [None]
  - HYPOTENSION [None]
  - DYSPNOEA [None]
  - OFF LABEL USE [None]
  - MYOCARDIAL INFARCTION [None]
  - PLEURAL EFFUSION [None]
